FAERS Safety Report 11775745 (Version 2)
Quarter: 2016Q1

REPORT INFORMATION
  Report Type: Spontaneous
  Country: US (occurrence: US)
  Receive Date: 20151125
  Receipt Date: 20160302
  Transmission Date: 20160525
  Serious: No
  Sender: FDA-Public Use
  Company Number: US-JNJFOC-20151103445

PATIENT
  Sex: Male

DRUGS (2)
  1. INVEGA [Suspect]
     Active Substance: PALIPERIDONE
     Indication: PRODUCT USED FOR UNKNOWN INDICATION
     Route: 048
  2. RISPERDAL [Suspect]
     Active Substance: RISPERIDONE
     Indication: DEPRESSION
     Dosage: 0.25 - 1 MG
     Route: 048
     Dates: start: 2000, end: 2008

REACTIONS (4)
  - Gynaecomastia [Unknown]
  - Off label use [Unknown]
  - Weight increased [Unknown]
  - Product use issue [Unknown]

NARRATIVE: CASE EVENT DATE: 2000
